FAERS Safety Report 26066056 (Version 1)
Quarter: 2025Q4

REPORT INFORMATION
  Report Type: Spontaneous
  Country: US (occurrence: US)
  Receive Date: 20251119
  Receipt Date: 20251119
  Transmission Date: 20260119
  Serious: No
  Sender: MYLAN
  Company Number: US-MYLANLABS-2025M1096635

PATIENT
  Sex: Female

DRUGS (1)
  1. YUPELRI [Suspect]
     Active Substance: REVEFENACIN
     Indication: Product used for unknown indication
     Dosage: UNK

REACTIONS (1)
  - Dyspnoea [Recovering/Resolving]
